FAERS Safety Report 23989273 (Version 1)
Quarter: 2024Q2

REPORT INFORMATION
  Report Type: Spontaneous
  Country: US (occurrence: US)
  Receive Date: 20240619
  Receipt Date: 20240619
  Transmission Date: 20240716
  Serious: Yes (Death, Life-Threatening, Hospitalization, Disabling)
  Sender: FDA-Public Use
  Company Number: US-Accord-429399

PATIENT
  Age: 18 Year
  Sex: Male
  Weight: 65.5 kg

DRUGS (10)
  1. QUETIAPINE FUMARATE [Suspect]
     Active Substance: QUETIAPINE FUMARATE
     Indication: Major depression
     Dosage: IMMEDIATE RELEASE
  2. PAROXETINE [Suspect]
     Active Substance: PAROXETINE
     Indication: Major depression
  3. DIPHENHYDRAMINE [Suspect]
     Active Substance: DIPHENHYDRAMINE
     Indication: Pruritus
     Dosage: 25 MG/D PRN
  4. ALPRAZOLAM [Suspect]
     Active Substance: ALPRAZOLAM
     Indication: Panic attack
     Dosage: 0.25 MG, 1-2 TID PRN
  5. ACETAMINOPHEN [Concomitant]
     Active Substance: ACETAMINOPHEN
     Indication: Headache
  6. IBUPROFEN [Concomitant]
     Active Substance: IBUPROFEN
     Indication: Headache
  7. RIZATRIPTAN [Concomitant]
     Active Substance: RIZATRIPTAN
     Indication: Migraine
  8. QUETIAPINE FUMARATE [Suspect]
     Active Substance: QUETIAPINE FUMARATE
     Indication: Major depression
     Dosage: EXTENDED RELEASE /TITRATE TO 300 MG/D
  9. QUETIAPINE FUMARATE [Suspect]
     Active Substance: QUETIAPINE FUMARATE
     Indication: Major depression
     Dosage: EXTENDED RELEASE / TITRATE
  10. QUETIAPINE FUMARATE [Suspect]
     Active Substance: QUETIAPINE FUMARATE
     Indication: Major depression
     Dosage: EXTENDED RELEASE

REACTIONS (8)
  - Sedation [Fatal]
  - Brain injury [Fatal]
  - Antipsychotic drug level increased [Fatal]
  - Blood pressure decreased [Fatal]
  - Pneumonitis aspiration [Fatal]
  - Oesophageal disorder [Fatal]
  - Areflexia [Fatal]
  - Vomiting [Fatal]
